FAERS Safety Report 23459938 (Version 1)
Quarter: 2024Q1

REPORT INFORMATION
  Report Type: Spontaneous
  Country: CN (occurrence: CN)
  Receive Date: 20240131
  Receipt Date: 20240131
  Transmission Date: 20240410
  Serious: Yes (Hospitalization, Other)
  Sender: FDA-Public Use
  Company Number: CN-EPICPHARMA-CN-2024EPCLIT00222

PATIENT
  Age: 53 Year
  Sex: Male

DRUGS (1)
  1. LIDOCAINE HYDROCHLORIDE [Suspect]
     Active Substance: LIDOCAINE HYDROCHLORIDE
     Indication: Local anaesthesia
     Route: 058

REACTIONS (2)
  - Shock [Recovered/Resolved]
  - Toxicity to various agents [Recovered/Resolved]
